FAERS Safety Report 17293616 (Version 4)
Quarter: 2020Q2

REPORT INFORMATION
  Report Type: Report from Study
  Country: MX (occurrence: MX)
  Receive Date: 20200121
  Receipt Date: 20200625
  Transmission Date: 20200713
  Serious: Yes (Hospitalization, Other)
  Sender: FDA-Public Use
  Company Number: MX-SA-2018SA328570

PATIENT

DRUGS (1)
  1. ALEMTUZUMAB [Suspect]
     Active Substance: ALEMTUZUMAB
     Indication: MULTIPLE SCLEROSIS
     Dosage: UNK, UNK
     Route: 042
     Dates: start: 20171004

REACTIONS (7)
  - Immune thrombocytopenia [Not Recovered/Not Resolved]
  - Lymphocyte percentage decreased [Unknown]
  - Platelet count decreased [Not Recovered/Not Resolved]
  - Neutrophil count increased [Unknown]
  - Eosinophil percentage decreased [Unknown]
  - Mean platelet volume abnormal [Unknown]
  - Fatigue [Not Recovered/Not Resolved]

NARRATIVE: CASE EVENT DATE: 20181127
